FAERS Safety Report 13746033 (Version 1)
Quarter: 2017Q3

REPORT INFORMATION
  Report Type: Spontaneous
  Country: US (occurrence: US)
  Receive Date: 20170712
  Receipt Date: 20170712
  Transmission Date: 20171127
  Serious: Yes (Other)
  Sender: FDA-Public Use
  Company Number: None

PATIENT
  Age: 58 Year
  Sex: Female
  Weight: 54.9 kg

DRUGS (2)
  1. JESTRADIOL [Suspect]
     Active Substance: ESTRADIOL
     Indication: HORMONE REPLACEMENT THERAPY
     Dosage: ?          OTHER FREQUENCY:TWICE A WEEK;?
     Route: 062
     Dates: start: 20170703, end: 20170709
  2. ESTRADIOL(V) DIS [Concomitant]

REACTIONS (5)
  - Insomnia [None]
  - Product adhesion issue [None]
  - Heart rate increased [None]
  - Paraesthesia [None]
  - Hot flush [None]

NARRATIVE: CASE EVENT DATE: 20170705
